FAERS Safety Report 5623618-7 (Version None)
Quarter: 2008Q1

REPORT INFORMATION
  Report Type: 
  Country: None (occurrence: None)
  Receive Date: 20080212
  Receipt Date: 20080204
  Transmission Date: 20080703
  Serious: Yes (Other)
  Sender: FDA-Public Use
  Company Number: US-ABBOTT-08P-163-0437143-00

PATIENT
  Sex: Female
  Weight: 65.83 kg

DRUGS (4)
  1. VICODIN [Suspect]
     Indication: DRUG USE FOR UNKNOWN INDICATION
     Route: 048
     Dates: start: 20080105
  2. PARACETAMOL [Suspect]
     Indication: DRUG USE FOR UNKNOWN INDICATION
     Dosage: RAPID RELEASE GEL CAPS
     Route: 048
     Dates: start: 20080105
  3. ACETAMINOPHEN/DEXTROMETHORPHAN/HBR/GUAIFENESIN/PHENYLEPHRINE HCL [Suspect]
     Indication: NASOPHARYNGITIS
     Route: 048
     Dates: start: 20080105
  4. ACETAMINOPHEN/DEXTROMETHORPHAN/HBR/GUAIFENESIN/PHENYLEPHRINE HCL [Suspect]
     Indication: COUGH

REACTIONS (4)
  - DISORIENTATION [None]
  - DIZZINESS [None]
  - DRUG ADMINISTRATION ERROR [None]
  - LOSS OF CONSCIOUSNESS [None]
